FAERS Safety Report 6906685-X (Version None)
Quarter: 2010Q3

REPORT INFORMATION
  Report Type: 
  Country: None (occurrence: None)
  Receive Date: 20100804
  Receipt Date: 20100720
  Transmission Date: 20110219
  Serious: Yes (Other)
  Sender: FDA-Public Use
  Company Number: BR-JNJFOC-20100608092

PATIENT
  Sex: Female
  Weight: 72 kg

DRUGS (11)
  1. TRAMAL [Suspect]
     Indication: HEADACHE
     Route: 042
  2. ACETAMINOPHEN [Suspect]
     Indication: NAUSEA
     Route: 048
  3. ACETAMINOPHEN [Suspect]
     Indication: HEADACHE
     Route: 048
  4. PLASIL [Suspect]
     Indication: HEADACHE
     Route: 042
  5. MULTI-VITAMINS [Concomitant]
  6. FOLIC ACID [Concomitant]
  7. MYLANTA PLUS [Concomitant]
  8. ALGINIC ACID [Concomitant]
  9. ALUMINUM HYDROXIDE GEL [Concomitant]
  10. CALCIUM CARBONATE [Concomitant]
  11. MAGNESIUM HYDROXIDE TAB [Concomitant]

REACTIONS (9)
  - BONE PAIN [None]
  - COLD SWEAT [None]
  - DRUG EXPOSURE DURING PREGNANCY [None]
  - DRUG INEFFECTIVE [None]
  - DYSPEPSIA [None]
  - FEELING ABNORMAL [None]
  - NAUSEA [None]
  - TACHYCARDIA [None]
  - VOMITING [None]
